FAERS Safety Report 19442767 (Version 2)
Quarter: 2021Q3

REPORT INFORMATION
  Report Type: Other
  Country: US (occurrence: US)
  Receive Date: 20210621
  Receipt Date: 20210921
  Transmission Date: 20211014
  Serious: Yes (Other)
  Sender: FDA-Public Use
  Company Number: US-ACORDA-ACO_169327_2021

PATIENT
  Sex: Male

DRUGS (5)
  1. INBRIJA [Suspect]
     Active Substance: LEVODOPA
     Indication: PARKINSON^S DISEASE
     Dosage: 84 MILLIGRAM, PRN (NOT TO EXCEED 5 DOSES A DAY)
     Dates: start: 20210201
  2. ROPINIROLE. [Concomitant]
     Active Substance: ROPINIROLE
     Indication: PRODUCT USED FOR UNKNOWN INDICATION
     Dosage: 12 MILLIGRAM, 1 PILL 1X/DAY
     Route: 065
  3. INBRIJA [Suspect]
     Active Substance: LEVODOPA
     Indication: ON AND OFF PHENOMENON
  4. GABAPENTIN. [Concomitant]
     Active Substance: GABAPENTIN
     Indication: PRODUCT USED FOR UNKNOWN INDICATION
     Dosage: 600 MILLIGRAM, ONE TABLET IN AM AND 2 TABLETS AT NIGHT
     Route: 065
  5. AMANTADINE. [Concomitant]
     Active Substance: AMANTADINE HYDROCHLORIDE
     Indication: PRODUCT USED FOR UNKNOWN INDICATION
     Dosage: 100 MILLIGRAM, BID
     Route: 065

REACTIONS (8)
  - Arthropathy [Unknown]
  - Cough [Not Recovered/Not Resolved]
  - Product communication issue [Unknown]
  - Choking [Unknown]
  - Intentional underdose [Unknown]
  - Device difficult to use [Unknown]
  - Fatigue [Not Recovered/Not Resolved]
  - Discomfort [Not Recovered/Not Resolved]
